FAERS Safety Report 6370888-6 (Version None)
Quarter: 2009Q3

REPORT INFORMATION
  Report Type: 
  Country: None (occurrence: None)
  Receive Date: 20090923
  Receipt Date: 20070321
  Transmission Date: 20100115
  Serious: Yes (Hospitalization)
  Sender: FDA-Public Use
  Company Number: US-ASTRAZENECA-2006UW22647

PATIENT
  Age: 18872 Day
  Sex: Female
  Weight: 101.6 kg

DRUGS (19)
  1. SEROQUEL [Suspect]
     Indication: BIPOLAR DISORDER
     Dosage: 100 MG- 600 MG
     Route: 048
     Dates: start: 20010502
  2. SEROQUEL [Suspect]
     Indication: DEPRESSION
     Dosage: 100 MG- 600 MG
     Route: 048
     Dates: start: 20010502
  3. SEROQUEL [Suspect]
     Dosage: 200 MG
     Route: 048
     Dates: start: 20030101
  4. SEROQUEL [Suspect]
     Dosage: 200 MG
     Route: 048
     Dates: start: 20030101
  5. GEODON [Concomitant]
  6. RISPERDAL [Concomitant]
  7. THORAZINE [Concomitant]
  8. ZYPREXA [Concomitant]
  9. ZOCOR [Concomitant]
  10. MICARDIS [Concomitant]
  11. VERAPAMIL [Concomitant]
  12. HYDROCHLOROTHIAZIDE [Concomitant]
  13. DIOVAN [Concomitant]
  14. METFORMIN HCL [Concomitant]
  15. NORVASC [Concomitant]
  16. OMNICEF [Concomitant]
  17. LANTUS [Concomitant]
  18. HUMALOG [Concomitant]
  19. NOVOLOG [Concomitant]

REACTIONS (3)
  - DIABETES MELLITUS [None]
  - DIABETES MELLITUS INADEQUATE CONTROL [None]
  - TYPE 2 DIABETES MELLITUS [None]
